FAERS Safety Report 5314998-0 (Version None)
Quarter: 2007Q2

REPORT INFORMATION
  Report Type: 
  Country: None (occurrence: None)
  Receive Date: 20070502
  Receipt Date: 20070423
  Transmission Date: 20071010
  Serious: Yes (Other)
  Sender: FDA-Public Use
  Company Number: US-SANOFI-SYNTHELABO-A03200702069

PATIENT
  Sex: Male

DRUGS (5)
  1. LORTAB [Concomitant]
     Dosage: UNK
     Route: 048
  2. CELEXA [Concomitant]
     Route: 048
  3. WELLBUTRIN [Concomitant]
     Dosage: UNK
     Route: 048
  4. AMBIEN [Suspect]
     Indication: INSOMNIA
     Route: 048
     Dates: start: 20050701, end: 20050701
  5. IMITREX [Concomitant]
     Dosage: UNK
     Route: 048

REACTIONS (3)
  - AMNESIA [None]
  - IMPAIRED DRIVING ABILITY [None]
  - SLEEP WALKING [None]
